FAERS Safety Report 18397494 (Version 1)
Quarter: 2020Q4

REPORT INFORMATION
  Report Type: Report from Study
  Country: US (occurrence: US)
  Receive Date: 20201019
  Receipt Date: 20201019
  Transmission Date: 20210114
  Serious: Yes (Death)
  Sender: FDA-Public Use
  Company Number: US-PFIZER INC-2020398626

PATIENT
  Sex: Female

DRUGS (1)
  1. TEMSIROLIMUS. [Suspect]
     Active Substance: TEMSIROLIMUS
     Indication: ENDOMETRIAL CANCER
     Dosage: 25 MG, WEEKLY
     Route: 042

REACTIONS (2)
  - Cardiac failure congestive [Fatal]
  - Left ventricular dysfunction [Fatal]
